FAERS Safety Report 8625406-6 (Version None)
Quarter: 2012Q3

REPORT INFORMATION
  Report Type: 
  Country: None (occurrence: None)
  Receive Date: 20120827
  Receipt Date: 20120815
  Transmission Date: 20120928
  Serious: Yes (Hospitalization)
  Sender: FDA-Public Use
  Company Number: BR-ELI_LILLY_AND_COMPANY-BR201208004781

PATIENT
  Sex: Female

DRUGS (5)
  1. ASPIRIN [Concomitant]
     Dosage: UNK, UNKNOWN
     Route: 065
  2. ESCITALOPRAM OXALATE [Concomitant]
     Indication: DEPRESSION
     Dosage: UNK UNK, UNKNOWN
     Route: 065
  3. FORTEO [Suspect]
     Indication: OSTEOPOROSIS
     Dosage: 20 UG, QD
     Route: 065
     Dates: start: 20101001, end: 20120801
  4. GALANTAMINE HYDROBROMIDE [Concomitant]
     Dosage: UNK, UNKNOWN
     Route: 065
  5. CRESTOR [Concomitant]
     Indication: BLOOD PRESSURE
     Dosage: UNK, UNKNOWN
     Route: 065

REACTIONS (3)
  - ANGINA PECTORIS [None]
  - BLOOD PRESSURE INCREASED [None]
  - LUNG DISORDER [None]
